FAERS Safety Report 25052332 (Version 2)
Quarter: 2025Q1

REPORT INFORMATION
  Report Type: Spontaneous
  Country: US (occurrence: US)
  Receive Date: 20250307
  Receipt Date: 20250310
  Transmission Date: 20250408
  Serious: Yes (Death)
  Sender: PFIZER
  Company Number: US-PFIZER INC-PV202300151811

PATIENT
  Age: 63 Year
  Sex: Female

DRUGS (2)
  1. TALZENNA [Suspect]
     Active Substance: TALAZOPARIB TOSYLATE
     Indication: Breast mass
     Dosage: 1 MG, DAILY (WITH OR WITHOUT FOOD)
     Route: 048
  2. TALZENNA [Suspect]
     Active Substance: TALAZOPARIB TOSYLATE
     Indication: Breast cancer
     Dosage: 1 MG, DAILY (TAKE 1 MG BY MOUTH DAILY)
     Route: 048
     Dates: start: 20250131, end: 20250305

REACTIONS (1)
  - Death [Fatal]
